FAERS Safety Report 4950757-6 (Version None)
Quarter: 2006Q1

REPORT INFORMATION
  Report Type: 
  Country: None (occurrence: None)
  Receive Date: 20060322
  Receipt Date: 20060220
  Transmission Date: 20060701
  Serious: Yes (Death)
  Sender: FDA-Public Use
  Company Number: JP-ROCHE-437711

PATIENT
  Age: 78 Year
  Sex: Female
  Weight: 43 kg

DRUGS (11)
  1. TAMIFLU [Suspect]
     Route: 048
     Dates: start: 20060207, end: 20060211
  2. AVELOX [Concomitant]
     Route: 048
     Dates: start: 20060207, end: 20060211
  3. MUCOSAL [Concomitant]
     Route: 048
     Dates: start: 20060207, end: 20060211
  4. NIFESLOW [Concomitant]
     Route: 048
  5. CALFINA [Concomitant]
     Route: 048
  6. PROPIVERINE HYDROCHLORIDE [Concomitant]
     Route: 048
  7. EBASTEL [Concomitant]
     Route: 048
  8. MAGNESIUM OXIDE [Concomitant]
     Route: 048
  9. ACTONEL [Concomitant]
     Route: 048
  10. CYANOCOBALAMIN [Concomitant]
     Route: 048
  11. SOFALCONE [Concomitant]
     Dosage: REPORTED AS SORNILART.
     Route: 048

REACTIONS (3)
  - DISSEMINATED INTRAVASCULAR COAGULATION [None]
  - HAEMORRHAGIC CEREBRAL INFARCTION [None]
  - INTERSTITIAL LUNG DISEASE [None]
